FAERS Safety Report 4493169-4 (Version None)
Quarter: 2004Q4

REPORT INFORMATION
  Report Type: 
  Country: None (occurrence: None)
  Receive Date: 20041029
  Receipt Date: 20041021
  Transmission Date: 20050328
  Serious: Yes (Death, Disabling, Other)
  Sender: FDA-Public Use
  Company Number: 2004240914US

PATIENT
  Age: 74 Year
  Sex: Female
  Weight: 30.4 kg

DRUGS (1)
  1. CELEBREX [Suspect]
     Indication: ARTHRITIS
     Dosage: 200 MG, QD, ORAL
     Route: 048
     Dates: end: 20040801

REACTIONS (5)
  - DYSPNOEA [None]
  - FATIGUE [None]
  - MYOCARDIAL INFARCTION [None]
  - POLYNEUROPATHY [None]
  - WEIGHT INCREASED [None]
